FAERS Safety Report 14637736 (Version 2)
Quarter: 2018Q2

REPORT INFORMATION
  Report Type: Spontaneous
  Country: JP (occurrence: JP)
  Receive Date: 20180314
  Receipt Date: 20180411
  Transmission Date: 20180711
  Serious: Yes (Hospitalization)
  Sender: FDA-Public Use
  Company Number: JP-MITSUBISHI TANABE PHARMA CORPORATION-MTPC2018-0004357

PATIENT
  Age: 65 Year
  Sex: Male

DRUGS (1)
  1. RADICUT [Suspect]
     Active Substance: EDARAVONE
     Route: 051

REACTIONS (1)
  - Cerebral hyperperfusion syndrome [Unknown]
